FAERS Safety Report 5890273-0 (Version None)
Quarter: 2008Q3

REPORT INFORMATION
  Report Type: 
  Country: None (occurrence: None)
  Receive Date: 20080919
  Receipt Date: 20080909
  Transmission Date: 20090109
  Serious: Yes (Other)
  Sender: FDA-Public Use
  Company Number: JP-PFIZER INC-2008077655

PATIENT
  Age: 47 Year
  Sex: Female

DRUGS (1)
  1. GABAPEN [Suspect]
     Indication: NEURALGIA
     Route: 048

REACTIONS (1)
  - HYPOAESTHESIA [None]
